FAERS Safety Report 7241751-3 (Version None)
Quarter: 2011Q1

REPORT INFORMATION
  Report Type: 
  Country: None (occurrence: None)
  Receive Date: 20110124
  Receipt Date: 20101130
  Transmission Date: 20110831
  Serious: Yes (Hospitalization, Other)
  Sender: FDA-Public Use
  Company Number: US-BAYER-201038036NA

PATIENT
  Sex: Female
  Weight: 95.238 kg

DRUGS (10)
  1. YAZ [Suspect]
     Indication: ACNE
     Dosage: UNK
     Dates: start: 20050101, end: 20070101
  2. ATARAX [Concomitant]
     Indication: MULTIPLE ALLERGIES
     Dosage: UNK
     Dates: start: 19980101, end: 20100101
  3. YAZ [Suspect]
     Indication: PREMENSTRUAL SYNDROME
  4. OXYCODONE AND ACETAMINOPHEN [Concomitant]
     Dosage: UNK
     Route: 048
     Dates: start: 20070921
  5. ALBUTEROL [Concomitant]
     Indication: ASTHMA
     Dosage: UNK
     Dates: start: 20010101, end: 20100101
  6. OCELLA [Suspect]
     Indication: ACNE
  7. OMNICEF [Concomitant]
     Indication: OTITIS MEDIA
     Dosage: UNK
     Dates: start: 20070911
  8. CEFDINIR [Concomitant]
     Dosage: UNK
     Route: 048
     Dates: start: 20070906
  9. AZITHROMYCIN [Concomitant]
     Dosage: UNK
     Route: 048
     Dates: start: 20070911
  10. YASMIN [Suspect]
     Indication: ACNE

REACTIONS (5)
  - CHOLECYSTITIS CHRONIC [None]
  - CHOLESTEROSIS [None]
  - CHOLECYSTITIS ACUTE [None]
  - PAIN [None]
  - CHOLELITHIASIS [None]
